FAERS Safety Report 4404677-6 (Version None)
Quarter: 2004Q3

REPORT INFORMATION
  Report Type: 
  Country: None (occurrence: None)
  Receive Date: 20040722
  Receipt Date: 20040715
  Transmission Date: 20050211
  Serious: Yes (Disabling)
  Sender: FDA-Public Use
  Company Number: GB-MERCK-0407GBR00164

PATIENT
  Age: 70 Year
  Sex: Male

DRUGS (2)
  1. [THERAPY UNSPECIFIED] [Concomitant]
     Route: 065
  2. ZOCOR [Suspect]
     Route: 048

REACTIONS (1)
  - COGNITIVE DISORDER [None]
